FAERS Safety Report 8296536-6 (Version None)
Quarter: 2012Q2

REPORT INFORMATION
  Report Type: 
  Country: None (occurrence: None)
  Receive Date: 20120418
  Receipt Date: 20120417
  Transmission Date: 20120825
  Serious: Yes (Hospitalization)
  Sender: FDA-Public Use
  Company Number: FR-MERCK-1204FRA00063

PATIENT
  Age: 58 Year
  Sex: Female

DRUGS (9)
  1. DOCETAXEL [Suspect]
     Indication: BREAST CANCER
     Route: 042
     Dates: start: 20111007, end: 20111118
  2. ONDANSETRON [Suspect]
     Route: 042
     Dates: start: 20110901, end: 20111118
  3. METHYLPREDNISOLONE SODIUM SUCCINATE [Concomitant]
     Route: 041
     Dates: start: 20110901, end: 20111118
  4. SERTRALINE HYDROCHLORIDE [Concomitant]
     Route: 065
  5. DIVALPROEX SODIUM [Concomitant]
     Route: 065
  6. ETHYL LOFLAZEPATE [Concomitant]
     Route: 065
  7. EMEND [Suspect]
     Route: 048
     Dates: start: 20110901, end: 20111120
  8. TRASTUZUMAB [Suspect]
     Indication: BREAST CANCER
     Route: 041
     Dates: start: 20111007, end: 20111118
  9. LEVOTHYROXINE SODIUM [Concomitant]
     Indication: HYPOTHYROIDISM
     Route: 048

REACTIONS (1)
  - CEREBELLAR SYNDROME [None]
